FAERS Safety Report 6833756-9 (Version None)
Quarter: 2010Q3

REPORT INFORMATION
  Report Type: 
  Country: None (occurrence: None)
  Receive Date: 20100712
  Receipt Date: 20070402
  Transmission Date: 20110219
  Serious: No
  Sender: FDA-Public Use
  Company Number: US-PFIZER INC-2007026825

PATIENT
  Sex: Female
  Weight: 72.6 kg

DRUGS (7)
  1. CHANTIX [Suspect]
     Indication: SMOKING CESSATION THERAPY
     Dates: start: 20070330
  2. XANAX [Concomitant]
  3. OXYCODONE HCL [Concomitant]
  4. NEXIUM [Concomitant]
  5. ZICAM, UNSPECIFIED [Concomitant]
  6. TOPROL-XL [Concomitant]
  7. TRICOR [Concomitant]

REACTIONS (2)
  - NAUSEA [None]
  - VOMITING [None]
